FAERS Safety Report 12144532 (Version 1)
Quarter: 2016Q1

REPORT INFORMATION
  Report Type: Spontaneous
  Country: US (occurrence: None)
  Receive Date: 20160303
  Receipt Date: 20160303
  Transmission Date: 20160526
  Serious: Yes (Hospitalization, Other)
  Sender: FDA-Public Use
  Company Number: None

PATIENT
  Age: 39 Year
  Sex: Male
  Weight: 77.11 kg

DRUGS (3)
  1. ALIGN [Concomitant]
     Active Substance: BIFIDOBACTERIUM LONGUM SUBSP. INFANTIS
  2. PROBIOTIC [Concomitant]
     Active Substance: PROBIOTICS NOS
  3. CIPROFLOXACIN. [Suspect]
     Active Substance: CIPROFLOXACIN
     Indication: PROSTATITIS
     Dosage: 1 PILL TWICE DAILY TAKEN BY MOUTH
     Route: 048
     Dates: start: 20160211, end: 20160225

REACTIONS (9)
  - Anxiety [None]
  - Heart rate increased [None]
  - Quality of life decreased [None]
  - Presyncope [None]
  - Hypoaesthesia [None]
  - Muscle spasms [None]
  - Depressed level of consciousness [None]
  - Hypoaesthesia oral [None]
  - Gastrointestinal hypomotility [None]

NARRATIVE: CASE EVENT DATE: 20160211
